FAERS Safety Report 7641795-3 (Version None)
Quarter: 2011Q3

REPORT INFORMATION
  Report Type: 
  Country: None (occurrence: None)
  Receive Date: 20110728
  Receipt Date: 20110720
  Transmission Date: 20111222
  Serious: Yes (Other)
  Sender: FDA-Public Use
  Company Number: US-JNJFOC-2009018455

PATIENT
  Age: 67 Year
  Sex: Female
  Weight: 57.2 kg

DRUGS (1)
  1. VISINE EYE DROPS [Suspect]
     Indication: EYE PRURITUS
     Dosage: DAILY DOSE TEXT: ONE DROP IN EACH EYE ONCE
     Route: 047
     Dates: start: 20090530, end: 20090530

REACTIONS (2)
  - MYDRIASIS [None]
  - VISUAL IMPAIRMENT [None]
